FAERS Safety Report 6297494-6 (Version None)
Quarter: 2009Q3

REPORT INFORMATION
  Report Type: 
  Country: None (occurrence: None)
  Receive Date: 20090805
  Receipt Date: 20090728
  Transmission Date: 20100115
  Serious: Yes (Death, Hospitalization)
  Sender: FDA-Public Use
  Company Number: DE-AMGEN-US358303

PATIENT
  Age: 65 Year
  Sex: Male

DRUGS (14)
  1. ENBREL [Suspect]
     Indication: DRUG USE FOR UNKNOWN INDICATION
     Dosage: UNKNOWN
     Route: 058
     Dates: start: 20050301, end: 20080401
  2. ENBREL [Suspect]
     Route: 058
     Dates: start: 20080401, end: 20080601
  3. ENBREL [Suspect]
     Route: 058
     Dates: start: 20080601, end: 20080901
  4. ENBREL [Suspect]
     Dosage: 25 MG, SINGLE DOSE
     Route: 058
     Dates: start: 20080930, end: 20080930
  5. SIMVASTATIN [Concomitant]
     Route: 065
  6. BELOC ZOK [Concomitant]
     Route: 065
  7. TOREM [Concomitant]
     Route: 065
  8. FOSAMAX [Concomitant]
     Route: 065
  9. ENALAPRIL MALEATE [Concomitant]
     Route: 065
  10. CALCILAC [Concomitant]
     Dosage: TWO TIMES DAILY
     Route: 065
  11. NEXIUM [Concomitant]
     Route: 065
  12. TEMGESIC [Concomitant]
     Route: 065
  13. PREDNISOLONE [Concomitant]
     Dosage: FROM 02-OCT-2009 TO 05-OCT-2009 90 MG DAILY, FOR THE OTHER PERIOD UNKNOWN
     Route: 065
     Dates: start: 19860101
  14. ENOXAPARIN SODIUM [Concomitant]
     Route: 065

REACTIONS (4)
  - ACUTE PULMONARY OEDEMA [None]
  - MULTI-ORGAN FAILURE [None]
  - NECROTISING FASCIITIS [None]
  - STAPHYLOCOCCAL SEPSIS [None]
